FAERS Safety Report 26155470 (Version 1)
Quarter: 2025Q4

REPORT INFORMATION
  Report Type: Spontaneous
  Country: CN (occurrence: CN)
  Receive Date: 20251215
  Receipt Date: 20251215
  Transmission Date: 20260117
  Serious: Yes (Other)
  Sender: ALKEM
  Company Number: None

PATIENT
  Age: 3 Year
  Sex: Male
  Weight: 17 kg

DRUGS (5)
  1. TACROLIMUS [Suspect]
     Active Substance: TACROLIMUS
     Indication: Nephrotic syndrome
     Dosage: 0.5 MILLIGRAM, BID
     Route: 065
     Dates: start: 20180307, end: 20180309
  2. CYCLOSPORINE [Suspect]
     Active Substance: CYCLOSPORINE
     Indication: Nephrotic syndrome
     Dosage: 0.04 MILLILITER, BID
     Route: 048
     Dates: start: 20180125, end: 20180125
  3. PREDNISONE [Suspect]
     Active Substance: PREDNISONE
     Indication: Nephrotic syndrome
     Dosage: 2 MILLIGRAM/KILOGRAM
     Route: 048
     Dates: start: 20171120
  4. PREDNISONE [Suspect]
     Active Substance: PREDNISONE
     Dosage: 10 MILLIGRAM/KILOGRAM, QD
     Route: 048
     Dates: start: 20180313, end: 20180425
  5. PREDNISONE [Suspect]
     Active Substance: PREDNISONE
     Dosage: 5 MILLIGRAM/KILOGRAM, QD
     Route: 048
     Dates: start: 20180426

REACTIONS (4)
  - Acute kidney injury [Recovered/Resolved]
  - Cytomegalovirus infection [Recovered/Resolved]
  - Blood creatinine increased [Recovering/Resolving]
  - Peritonitis viral [Recovered/Resolved]

NARRATIVE: CASE EVENT DATE: 20180401
